FAERS Safety Report 24047213 (Version 2)
Quarter: 2025Q4

REPORT INFORMATION
  Report Type: Report from Study
  Country: CA (occurrence: CA)
  Receive Date: 20240703
  Receipt Date: 20251029
  Transmission Date: 20260118
  Serious: Yes (Other)
  Sender: ABBVIE
  Company Number: CA-ABBVIE-5751872

PATIENT
  Age: 60 Year
  Sex: Female

DRUGS (2)
  1. RINVOQ [Suspect]
     Active Substance: UPADACITINIB
     Indication: Dermatitis atopic
     Dosage: LAST ADMIN DATE-2024
     Route: 048
     Dates: start: 20240416
  2. TYLENOL [Concomitant]
     Active Substance: ACETAMINOPHEN
     Indication: Product used for unknown indication
     Dates: start: 2024

REACTIONS (9)
  - Cervical discharge [Unknown]
  - Nasopharyngitis [Recovering/Resolving]
  - Lacrimation increased [Unknown]
  - Productive cough [Unknown]
  - Headache [Unknown]
  - Oropharyngeal pain [Unknown]
  - Myelodysplastic syndrome [Unknown]
  - Sputum discoloured [Unknown]
  - Aphonia [Unknown]

NARRATIVE: CASE EVENT DATE: 20240101
